FAERS Safety Report 7767734-2 (Version None)
Quarter: 2011Q3

REPORT INFORMATION
  Report Type: 
  Country: None (occurrence: None)
  Receive Date: 20110922
  Receipt Date: 20110418
  Transmission Date: 20111222
  Serious: No
  Sender: FDA-Public Use
  Company Number: US-ASTRAZENECA-2009SE09762

PATIENT
  Age: 18468 Day
  Sex: Male
  Weight: 127 kg

DRUGS (3)
  1. CLONAZEPAM [Concomitant]
     Dates: start: 20040101
  2. DEPAKOTE [Concomitant]
     Dates: start: 20030101
  3. SEROQUEL [Suspect]
     Indication: DEPRESSION
     Route: 048
     Dates: start: 20051225

REACTIONS (2)
  - TYPE 2 DIABETES MELLITUS [None]
  - LOSS OF CONSCIOUSNESS [None]
